FAERS Safety Report 16198408 (Version 3)
Quarter: 2019Q2

REPORT INFORMATION
  Report Type: Spontaneous
  Country: US (occurrence: US)
  Receive Date: 20190415
  Receipt Date: 20190515
  Transmission Date: 20190711
  Serious: Yes (Other)
  Sender: FDA-Public Use
  Company Number: US-GLENMARK PHARMACEUTICALS-2019GMK040632

PATIENT
  Age: 55 Year
  Sex: Male
  Weight: 85 kg

DRUGS (15)
  1. CIPROFLOXACIN. [Concomitant]
     Active Substance: CIPROFLOXACIN
     Indication: HIV INFECTION
     Dosage: 400 MG, BID
     Route: 042
  2. LIDOCAINE. [Suspect]
     Active Substance: LIDOCAINE
     Indication: PROCEDURAL PAIN
     Dosage: 12 MG, IV LIDOCAINE BOLUS OF 120 MG PER HOUR
     Route: 042
  3. LIDOCAINE. [Interacting]
     Active Substance: LIDOCAINE
     Dosage: 1 MG/KG, (PER HOUR RESTARTED); LOW-DOSE CONTINUOUS IV LIDOCAINE INFUSION AT 1MG/KG/H
     Route: 042
  4. CANDESARTAN. [Concomitant]
     Active Substance: CANDESARTAN
     Indication: HIV INFECTION
     Dosage: 16 MG, QD
     Route: 048
  5. HEPARIN [Concomitant]
     Active Substance: HEPARIN SODIUM
     Indication: HIV INFECTION
     Dosage: 5000 IU, TID (AS REPORTED: 5000 U Q8H)
     Route: 058
  6. ROSUVASTATIN. [Concomitant]
     Active Substance: ROSUVASTATIN
     Indication: HIV INFECTION
     Dosage: 40 MG, OD (QPM)
     Route: 048
  7. VANCOMYCIN [Concomitant]
     Active Substance: VANCOMYCIN
     Indication: HIV INFECTION
     Dosage: 1.25 G, BID
     Route: 042
  8. ATAZANAVIR. [Interacting]
     Active Substance: ATAZANAVIR
     Indication: HIV INFECTION
     Dosage: 300 MG, QD
     Route: 048
  9. FENTANYL. [Concomitant]
     Active Substance: FENTANYL
     Indication: ANALGESIC THERAPY
     Dosage: 30 ?G, UNK (EVERY 10 MINS)
     Route: 042
  10. LIDOCAINE. [Interacting]
     Active Substance: LIDOCAINE
     Dosage: 2 MG/KG, FOR 2 HOURS (TOTAL DOSE 460 MG)
     Route: 042
  11. FENTANYL. [Concomitant]
     Active Substance: FENTANYL
     Dosage: 1140 MCG, WITHIN THE PREVIOUS 24 HOURS
     Route: 042
  12. ABACAVIR W/LAMIVUDINE [Concomitant]
     Active Substance: ABACAVIR\LAMIVUDINE
     Indication: HIV INFECTION
     Dosage: UNK, OD (1 TABLET DAILY)
     Route: 048
  13. RITONAVIR. [Interacting]
     Active Substance: RITONAVIR
     Indication: HIV INFECTION
     Dosage: 100 MG, QD
     Route: 048
  14. ASPIRIN                            /00002701/ [Concomitant]
     Active Substance: ASPIRIN
     Indication: HIV INFECTION
     Dosage: 325 MG, OD
     Route: 048
  15. METOPROLOL SUCCINATE. [Concomitant]
     Active Substance: METOPROLOL SUCCINATE
     Indication: HIV INFECTION
     Dosage: 25 MG, QD
     Route: 048

REACTIONS (12)
  - Hyperhidrosis [Unknown]
  - Analgesic drug level above therapeutic [Recovered/Resolved]
  - Loss of consciousness [Recovered/Resolved]
  - Drug interaction [Unknown]
  - Unresponsive to stimuli [Recovered/Resolved]
  - Oxygen saturation decreased [Recovered/Resolved]
  - Hypertension [Recovered/Resolved]
  - Dizziness [Unknown]
  - Sinus tachycardia [Recovered/Resolved]
  - Toxicity to various agents [Unknown]
  - Feeling hot [Unknown]
  - Depressed level of consciousness [Unknown]
